FAERS Safety Report 7491047-X (Version None)
Quarter: 2011Q2

REPORT INFORMATION
  Report Type: 
  Country: None (occurrence: None)
  Receive Date: 20110519
  Receipt Date: 20110509
  Transmission Date: 20111010
  Serious: Yes (Hospitalization)
  Sender: FDA-Public Use
  Company Number: FR-EISAI INC-E3810-04674-SPO-FR

PATIENT
  Sex: Female

DRUGS (5)
  1. RAMIPRIL [Concomitant]
  2. RABEPRAZOLE SODIUM [Suspect]
     Route: 048
     Dates: start: 20110225, end: 20110322
  3. PIPERACILLIN AND TAZOBACTAM [Suspect]
     Route: 041
     Dates: start: 20110210, end: 20110322
  4. LASIX [Concomitant]
  5. CORDARONE [Concomitant]

REACTIONS (2)
  - EOSINOPHILIA [None]
  - AGRANULOCYTOSIS [None]
